FAERS Safety Report 5469777-0 (Version None)
Quarter: 2007Q3

REPORT INFORMATION
  Report Type: 
  Country: None (occurrence: None)
  Receive Date: 20070926
  Receipt Date: 20070926
  Transmission Date: 20080115
  Serious: Yes (Life-Threatening, Hospitalization)
  Sender: FDA-Public Use
  Company Number: None

PATIENT
  Age: 59 Year
  Sex: Female

DRUGS (2)
  1. TEMOZOLOMIDE [Suspect]
     Indication: METASTATIC MALIGNANT MELANOMA
     Dosage: 140 MG DAILY PO
     Route: 048
     Dates: start: 20070313, end: 20070412
  2. ANTI-HYPERTENSIVE [Concomitant]

REACTIONS (10)
  - ANTINUCLEAR ANTIBODY POSITIVE [None]
  - APLASTIC ANAEMIA [None]
  - BONE MARROW FAILURE [None]
  - ECCHYMOSIS [None]
  - MALIGNANT NEOPLASM PROGRESSION [None]
  - METASTASES TO LIVER [None]
  - METASTASES TO SOFT TISSUE [None]
  - METASTASES TO SPLEEN [None]
  - SKIN HAEMORRHAGE [None]
  - SOFT TISSUE INFECTION [None]
